FAERS Safety Report 7996414-3 (Version None)
Quarter: 2011Q4

REPORT INFORMATION
  Report Type: 
  Country: None (occurrence: None)
  Receive Date: 20111220
  Receipt Date: 20111205
  Transmission Date: 20120403
  Serious: Yes (Other)
  Sender: FDA-Public Use
  Company Number: KR-WATSON-2011-21787

PATIENT
  Age: 45 Year
  Sex: Female

DRUGS (3)
  1. HYDROCHLOROTHIAZIDE [Suspect]
     Indication: WEIGHT LOSS DIET
     Dosage: X1 MONTH
     Route: 065
  2. MAGNESIUM HYDROXIDE TAB [Suspect]
     Indication: WEIGHT LOSS DIET
     Dosage: X1 MONTH
     Route: 065
  3. FLUOXETINE HCL [Suspect]
     Indication: WEIGHT LOSS DIET
     Dosage: X1 MONTH
     Route: 065

REACTIONS (5)
  - VISUAL IMPAIRMENT [None]
  - MYOPIA [None]
  - CONJUNCTIVAL OEDEMA [None]
  - CHOROIDAL EFFUSION [None]
  - FLAT ANTERIOR CHAMBER OF EYE [None]
